FAERS Safety Report 8922362 (Version 2)
Quarter: 2012Q4

REPORT INFORMATION
  Report Type: Report from Study
  Country: US (occurrence: US)
  Receive Date: 20121123
  Receipt Date: 20121203
  Transmission Date: 20130627
  Serious: Yes (Death, Hospitalization)
  Sender: FDA-Public Use
  Company Number: US-PFIZER INC-2012289918

PATIENT
  Age: 71 Year
  Sex: Male
  Weight: 82.6 kg

DRUGS (1)
  1. DOXORUBICIN HCL [Suspect]
     Dosage: 144 mg, UNK
     Dates: start: 20121023

REACTIONS (1)
  - Dyspnoea [Fatal]
